FAERS Safety Report 19173412 (Version 2)
Quarter: 2021Q2

REPORT INFORMATION
  Report Type: Spontaneous
  Country: MA (occurrence: MA)
  Receive Date: 20210423
  Receipt Date: 20210502
  Transmission Date: 20210717
  Serious: Yes (Other)
  Sender: FDA-Public Use
  Company Number: MA-LUPIN PHARMACEUTICALS INC.-2021-05172

PATIENT
  Age: 37 Year
  Sex: Female

DRUGS (2)
  1. MISOPROSTOL TABLET [Suspect]
     Active Substance: MISOPROSTOL
     Indication: UTERINE ATONY
     Dosage: 5 DOSAGE FORM
     Route: 054
  2. OXYTOCIN. [Suspect]
     Active Substance: OXYTOCIN
     Indication: UTERINE ATONY
     Dosage: UNK
     Route: 065

REACTIONS (1)
  - Drug ineffective [Unknown]
